FAERS Safety Report 19574847 (Version 3)
Quarter: 2021Q3

REPORT INFORMATION
  Report Type: Report from Study
  Country: US (occurrence: US)
  Receive Date: 20210719
  Receipt Date: 20210921
  Transmission Date: 20211014
  Serious: Yes (Other)
  Sender: FDA-Public Use
  Company Number: US-SA-2021SA198756

PATIENT
  Age: 54 Year
  Sex: Female

DRUGS (3)
  1. GLATOPA [Concomitant]
     Active Substance: GLATIRAMER ACETATE
  2. TERIFLUNOMIDE. [Suspect]
     Active Substance: TERIFLUNOMIDE
     Indication: MULTIPLE SCLEROSIS
     Dosage: 1 DF, QD
     Route: 048
     Dates: start: 20210613
  3. TERIFLUNOMIDE. [Suspect]
     Active Substance: TERIFLUNOMIDE
     Dosage: 1 MG, QD
     Route: 048
     Dates: start: 20210719

REACTIONS (8)
  - Epistaxis [Recovered/Resolved]
  - Pain in extremity [Unknown]
  - Syncope [Recovered/Resolved]
  - Nerve compression [Unknown]
  - Hypoaesthesia [Unknown]
  - Nasal disorder [Recovered/Resolved]
  - Haemoglobin decreased [Unknown]
  - Paraesthesia [Unknown]

NARRATIVE: CASE EVENT DATE: 2021
